FAERS Safety Report 8302927-7 (Version None)
Quarter: 2012Q2

REPORT INFORMATION
  Report Type: 
  Country: None (occurrence: None)
  Receive Date: 20120420
  Receipt Date: 20120410
  Transmission Date: 20120825
  Serious: Yes (Other)
  Sender: FDA-Public Use
  Company Number: US-ROCHE-1050595

PATIENT
  Sex: Female
  Weight: 67.192 kg

DRUGS (28)
  1. REMICADE [Suspect]
     Indication: RHEUMATOID ARTHRITIS
     Route: 042
     Dates: start: 20100209, end: 20110627
  2. ACYCLOVIR [Concomitant]
  3. PRILOSEC [Concomitant]
  4. SYNTHROID [Concomitant]
  5. ORENCIA [Concomitant]
  6. INSULIN [Concomitant]
  7. ACTEMRA [Suspect]
     Indication: RHEUMATOID ARTHRITIS
     Dosage: 8 MG/KG
     Route: 042
     Dates: start: 20110811, end: 20120220
  8. AMITRIPTYLINE HCL [Concomitant]
  9. GABAPENTIN [Concomitant]
  10. TRAMADOL HCL [Concomitant]
     Dosage: 2 TABLETS THRICE DAILY
  11. SYNTHROID [Concomitant]
  12. ENBREL [Concomitant]
  13. PREDNISONE TAB [Concomitant]
     Indication: RHEUMATOID ARTHRITIS
     Route: 048
  14. FOSAMAX [Concomitant]
     Indication: OSTEOPOROSIS
     Dates: start: 20100625
  15. GLUCOPHAGE [Concomitant]
  16. HYDROCHLOROTHIAZIDE [Concomitant]
  17. LEUCOVORIN CALCIUM [Concomitant]
  18. ARAVA [Concomitant]
  19. ALTACE [Concomitant]
  20. AMARYL [Concomitant]
  21. FOLIC ACID [Concomitant]
  22. METHOTREXATE [Concomitant]
     Indication: RHEUMATOID ARTHRITIS
     Route: 058
  23. JANUVIA [Concomitant]
  24. LEVOXYL [Concomitant]
  25. COUMADIN [Concomitant]
  26. HUMIRA [Concomitant]
  27. TRILIPIX [Concomitant]
  28. RITUXAN [Concomitant]

REACTIONS (7)
  - HALO VISION [None]
  - TREMOR [None]
  - MULTIPLE SCLEROSIS [None]
  - VISION BLURRED [None]
  - CLONUS [None]
  - VERTIGO [None]
  - BALANCE DISORDER [None]
